FAERS Safety Report 7394419-7 (Version None)
Quarter: 2011Q2

REPORT INFORMATION
  Report Type: 
  Country: None (occurrence: None)
  Receive Date: 20110405
  Receipt Date: 20110325
  Transmission Date: 20111010
  Serious: Yes (Other)
  Sender: FDA-Public Use
  Company Number: RU-ROCHE-767567

PATIENT
  Sex: Female

DRUGS (1)
  1. MIRCERA [Suspect]
     Dosage: FORM AND FREQUENCY WAS NOT REPORTED.
     Route: 058
     Dates: start: 20090915

REACTIONS (2)
  - DEEP VEIN THROMBOSIS [None]
  - THROMBOCYTOSIS [None]
